FAERS Safety Report 22341258 (Version 1)
Quarter: 2023Q2

REPORT INFORMATION
  Report Type: Report from Study
  Country: US (occurrence: US)
  Receive Date: 20230518
  Receipt Date: 20230518
  Transmission Date: 20230721
  Serious: Yes (Other)
  Sender: FDA-Public Use
  Company Number: US-JNJFOC-20230524901

PATIENT

DRUGS (5)
  1. TOPIRAMATE [Suspect]
     Active Substance: TOPIRAMATE
     Indication: Weight increased
     Route: 048
  2. TOPIRAMATE [Suspect]
     Active Substance: TOPIRAMATE
     Route: 048
  3. TOPIRAMATE [Suspect]
     Active Substance: TOPIRAMATE
     Route: 048
  4. OLANZAPINE [Suspect]
     Active Substance: OLANZAPINE
     Indication: Bipolar I disorder
     Dosage: STARTING AT 510 MG, WITH FLEXIBLE TITRATION BASED ON ANTIMANIC EFFICACY TO A MAXIMUM DOSE OF 20 MG
     Route: 065
  5. OLANZAPINE [Suspect]
     Active Substance: OLANZAPINE
     Route: 065

REACTIONS (14)
  - Suicide attempt [Unknown]
  - Hyperthermia malignant [Unknown]
  - Headache [Unknown]
  - Off label use [Unknown]
  - Neck pain [Unknown]
  - Rhinitis [Unknown]
  - Back pain [Unknown]
  - Mood altered [Unknown]
  - Myalgia [Unknown]
  - Overdose [Unknown]
  - Paraesthesia [Unknown]
  - Vision blurred [Unknown]
  - Abdominal discomfort [Unknown]
  - Gastrointestinal disorder [Unknown]
